FAERS Safety Report 19919180 (Version 3)
Quarter: 2021Q4

REPORT INFORMATION
  Report Type: Spontaneous
  Country: HR (occurrence: HR)
  Receive Date: 20211005
  Receipt Date: 20211116
  Transmission Date: 20220304
  Serious: Yes (Other)
  Sender: FDA-Public Use
  Company Number: HR-002147023-NVSC2021HR120489

PATIENT
  Age: 48 Year
  Sex: Female

DRUGS (7)
  1. LETROZOLE [Suspect]
     Active Substance: LETROZOLE
     Indication: Breast cancer metastatic
     Dosage: 2.5 MILLIGRAM
     Route: 048
     Dates: start: 20190621
  2. LETROZOLE [Suspect]
     Active Substance: LETROZOLE
     Indication: Hormone receptor positive HER2 negative breast cancer
  3. ZOLEDRONIC ACID [Suspect]
     Active Substance: ZOLEDRONIC ACID
     Indication: Hormone receptor positive HER2 negative breast cancer
     Dosage: 4 MILLIGRAM, MONTHLY (4 MG, QMO)
     Route: 042
     Dates: start: 20190621
  4. CALCIUM [Suspect]
     Active Substance: CALCIUM
     Indication: Osteoporosis
     Dosage: UNK
     Route: 065
     Dates: start: 20190621
  5. RIBOCICLIB [Suspect]
     Active Substance: RIBOCICLIB
     Indication: Breast cancer
     Dosage: 600 MILLIGRAM (600 MG)
     Route: 065
     Dates: start: 20190621
  6. ERGOCALCIFEROL [Suspect]
     Active Substance: ERGOCALCIFEROL
     Indication: Osteoporosis
     Dosage: UNK
     Route: 065
     Dates: start: 20190621
  7. GONADORELIN [Suspect]
     Active Substance: GONADORELIN
     Indication: Product used for unknown indication
     Dosage: 3.6 MILLIGRAM, MONTHLY (3.6 MG, QMO )
     Route: 058
     Dates: start: 20190621

REACTIONS (8)
  - Metastases to bone [Not Recovered/Not Resolved]
  - Carcinoembryonic antigen increased [Unknown]
  - Neutrophil count decreased [Recovered/Resolved]
  - Neutropenia [Unknown]
  - Carbohydrate antigen 125 increased [Unknown]
  - Carbohydrate antigen 15-3 increased [Unknown]
  - White blood cell count decreased [Recovered/Resolved]
  - Bone lesion [Unknown]

NARRATIVE: CASE EVENT DATE: 20210510
